FAERS Safety Report 18480957 (Version 1)
Quarter: 2020Q4

REPORT INFORMATION
  Report Type: Report from Study
  Country: CA (occurrence: CA)
  Receive Date: 20201109
  Receipt Date: 20201109
  Transmission Date: 20210114
  Serious: Yes (Hospitalization)
  Sender: FDA-Public Use
  Company Number: CA-JNJFOC-A-NJ2019-198153

PATIENT
  Age: 51 Year
  Sex: Female
  Weight: 160 kg

DRUGS (17)
  1. UPTRAVI [Suspect]
     Active Substance: SELEXIPAG
     Indication: PULMONARY ARTERIAL HYPERTENSION
     Dosage: 400 MCG
     Route: 048
     Dates: start: 20191021, end: 20191027
  2. UPTRAVI [Suspect]
     Active Substance: SELEXIPAG
     Dosage: 800 MG, QD
     Route: 048
     Dates: start: 20191028, end: 20191103
  3. UPTRAVI [Suspect]
     Active Substance: SELEXIPAG
     Dosage: 200 MCG
     Route: 048
     Dates: end: 2019
  4. ADCIRCA [Concomitant]
     Active Substance: TADALAFIL
     Dosage: 40 UNK
     Dates: start: 20180511
  5. UPTRAVI [Suspect]
     Active Substance: SELEXIPAG
     Dosage: 1200 MCG, QD
     Route: 048
     Dates: start: 20191104, end: 20191106
  6. DIGOXIN. [Concomitant]
     Active Substance: DIGOXIN
     Indication: PALPITATIONS
     Dates: start: 20201006
  7. UPTRAVI [Suspect]
     Active Substance: SELEXIPAG
     Dosage: 800 MCG, QD
     Route: 048
     Dates: start: 20191107, end: 20191121
  8. PREDNISONE. [Concomitant]
     Active Substance: PREDNISONE
     Indication: DERMATOMYOSITIS
     Dosage: UNK
     Route: 048
     Dates: start: 2017
  9. VITAMIN D [Concomitant]
     Active Substance: VITAMIN D NOS
  10. MYCOPHENOLIC ACID. [Concomitant]
     Active Substance: MYCOPHENOLIC ACID
     Indication: DERMATOMYOSITIS
     Dosage: UNK
     Dates: start: 201605
  11. LASIX [Concomitant]
     Active Substance: FUROSEMIDE
     Indication: RIGHT VENTRICULAR FAILURE
     Dosage: UNK
     Route: 042
     Dates: start: 20200522
  12. OPSUMIT [Suspect]
     Active Substance: MACITENTAN
     Indication: PULMONARY ARTERIAL HYPERTENSION
     Dosage: 10 MG
     Route: 048
     Dates: start: 20180322
  13. AMLODIPINE [Concomitant]
     Active Substance: AMLODIPINE BESYLATE
  14. DOMPERIDONE [Concomitant]
     Active Substance: DOMPERIDONE
  15. PREDNISONE. [Concomitant]
     Active Substance: PREDNISONE
     Indication: PERICARDIAL EFFUSION
     Dosage: 40 MG, QD
     Route: 048
  16. MG [Concomitant]
     Active Substance: MAGNESIUM
  17. LASIX [Concomitant]
     Active Substance: FUROSEMIDE
     Dosage: UNK
     Route: 048

REACTIONS (21)
  - Unevaluable event [Unknown]
  - Right ventricular failure [Recovering/Resolving]
  - Lower respiratory tract infection [Recovered/Resolved]
  - Malaise [Unknown]
  - Pneumonia [Recovered/Resolved]
  - Productive cough [Recovered/Resolved]
  - Viral infection [Recovered/Resolved]
  - Haemoglobin increased [Unknown]
  - Pulmonary arterial hypertension [Unknown]
  - N-terminal prohormone brain natriuretic peptide increased [Recovering/Resolving]
  - Fluid overload [Recovering/Resolving]
  - Adverse event [Unknown]
  - N-terminal prohormone brain natriuretic peptide [Unknown]
  - Chills [Recovered/Resolved]
  - Dyspnoea [Recovered/Resolved]
  - Fatigue [Unknown]
  - Condition aggravated [Unknown]
  - Insomnia [Unknown]
  - Non-cardiac chest pain [Recovering/Resolving]
  - Pyrexia [Recovered/Resolved]
  - Hypoxia [Recovered/Resolved]

NARRATIVE: CASE EVENT DATE: 20190916
